FAERS Safety Report 8282821-0 (Version None)
Quarter: 2012Q2

REPORT INFORMATION
  Report Type: 
  Country: None (occurrence: None)
  Receive Date: 20120413
  Receipt Date: 20120405
  Transmission Date: 20120825
  Serious: Yes (Hospitalization, Other)
  Sender: FDA-Public Use
  Company Number: PHHY2012JP029854

PATIENT
  Age: 87 Year
  Sex: Female

DRUGS (2)
  1. EXFORGE [Suspect]
     Indication: HYPERTENSION
     Dosage: 1 DF, DAILY
     Route: 048
     Dates: start: 20111101, end: 20120301
  2. EXFORGE [Suspect]
     Dosage: 1 DF,DAILY
     Route: 048
     Dates: start: 20120301

REACTIONS (3)
  - SEPTIC RASH [None]
  - RASH [None]
  - DERMATITIS BULLOUS [None]
